FAERS Safety Report 11287943 (Version 1)
Quarter: 2015Q3

REPORT INFORMATION
  Report Type: Spontaneous
  Country: IL (occurrence: IL)
  Receive Date: 20150721
  Receipt Date: 20150721
  Transmission Date: 20151125
  Serious: Yes (Death, Life-Threatening, Hospitalization)
  Sender: FDA-Public Use
  Company Number: IL-KAMADA LIMITED-2015IL005248

PATIENT

DRUGS (15)
  1. TACROLIMUS. [Concomitant]
     Active Substance: TACROLIMUS
     Dosage: 5 MG, DAILY
  2. IPRATROPIUM BROMIDE. [Concomitant]
     Active Substance: IPRATROPIUM BROMIDE
     Dosage: UNK UNK, Q4HR
  3. IMATINIB [Concomitant]
     Active Substance: IMATINIB
     Dosage: 100 MG, DAILY
  4. MONTELUKAST [Concomitant]
     Active Substance: MONTELUKAST SODIUM
     Dosage: 10 MG, DAILY
  5. AZATHIOPRINE. [Concomitant]
     Active Substance: AZATHIOPRINE
     Dosage: 100 MG, BID
  6. VALACYCLOVIR [Concomitant]
     Active Substance: VALACYCLOVIR HYDROCHLORIDE
     Dosage: 900 MG, BID
  7. ITRACONAZOLE. [Concomitant]
     Active Substance: ITRACONAZOLE
     Dosage: 130 MG, TID
  8. SALBUTAMOL [Concomitant]
     Active Substance: ALBUTEROL
     Dosage: 6/DAY
  9. RESPRIM [Concomitant]
     Dosage: 960 MG, DAILY
  10. PREDNISONE. [Concomitant]
     Active Substance: PREDNISONE
     Dosage: 1010 MG, DAILY
  11. OMEPRAZOLE. [Concomitant]
     Active Substance: OMEPRAZOLE
     Dosage: 20 MG, BID
  12. GLASSIA [Suspect]
     Active Substance: .ALPHA.1-PROTEINASE INHIBITOR HUMAN
     Indication: GRAFT VERSUS HOST DISEASE
     Dosage: 6 G PER WEEK
     Dates: start: 20150507
  13. INSULIN [Concomitant]
     Active Substance: INSULIN NOS
  14. BROTIZOLAM [Concomitant]
     Active Substance: BROTIZOLAM
     Dosage: 0.25 MG, DAILY
  15. BECLOMETHASONE DIPROPIONATE        /00212602/ [Concomitant]
     Dosage: UNK, BID

REACTIONS (5)
  - Hypokalaemia [Unknown]
  - Off label use [Unknown]
  - Septic shock [Fatal]
  - Dyspnoea [Unknown]
  - Hyponatraemia [Unknown]

NARRATIVE: CASE EVENT DATE: 20150604
